FAERS Safety Report 23584327 (Version 2)
Quarter: 2024Q2

REPORT INFORMATION
  Report Type: Spontaneous
  Country: NL (occurrence: NL)
  Receive Date: 20240301
  Receipt Date: 20240402
  Transmission Date: 20240716
  Serious: Yes (Life-Threatening)
  Sender: FDA-Public Use
  Company Number: None

PATIENT
  Age: 41 Year
  Sex: Male
  Weight: 65 kg

DRUGS (1)
  1. SERTRALINE [Suspect]
     Active Substance: SERTRALINE HYDROCHLORIDE
     Indication: Depression
     Dosage: 1X PER DAY
     Dates: start: 20220101, end: 20240122

REACTIONS (5)
  - Poor quality sleep [Unknown]
  - Nightmare [Unknown]
  - Aggression [Unknown]
  - Constipation [Unknown]
  - Suicide attempt [Unknown]
